FAERS Safety Report 10413426 (Version 1)
Quarter: 2014Q3

REPORT INFORMATION
  Report Type: Spontaneous
  Country: JP (occurrence: JP)
  Receive Date: 20140827
  Receipt Date: 20140827
  Transmission Date: 20150326
  Serious: Yes (Hospitalization)
  Sender: FDA-Public Use
  Company Number: JP-GLAXOSMITHKLINE-B1026094A

PATIENT
  Age: 83 Year
  Sex: Male

DRUGS (2)
  1. AVOLVE [Suspect]
     Active Substance: DUTASTERIDE
     Indication: BENIGN PROSTATIC HYPERPLASIA
     Dosage: .5MG PER DAY
     Route: 048
     Dates: start: 20140710
  2. HARNAL [Concomitant]
     Active Substance: TAMSULOSIN HYDROCHLORIDE
     Indication: BENIGN PROSTATIC HYPERPLASIA
     Route: 048

REACTIONS (8)
  - Pulse pressure decreased [Unknown]
  - Deep vein thrombosis [Unknown]
  - Pulmonary artery dilatation [Unknown]
  - Blood pressure systolic decreased [Unknown]
  - Dyspnoea exertional [Unknown]
  - Pulmonary embolism [Recovering/Resolving]
  - Urine output decreased [Unknown]
  - Metabolic acidosis [Unknown]

NARRATIVE: CASE EVENT DATE: 201407
